FAERS Safety Report 15106013 (Version 3)
Quarter: 2018Q3

REPORT INFORMATION
  Report Type: Spontaneous
  Country: IT (occurrence: IT)
  Receive Date: 20180704
  Receipt Date: 20180919
  Transmission Date: 20181010
  Serious: Yes (Hospitalization, Other)
  Sender: FDA-Public Use
  Company Number: IT-PFIZER INC-2018270665

PATIENT
  Age: 87 Year
  Sex: Female

DRUGS (5)
  1. TORADIUR [Suspect]
     Active Substance: TORSEMIDE
     Indication: BLOOD PRESSURE MANAGEMENT
     Dosage: 1 DF, UNK
     Route: 048
     Dates: start: 20100101
  2. LANOXIN [Suspect]
     Active Substance: DIGOXIN
     Indication: CARDIAC FAILURE
     Dosage: 1 DF, DAILY
     Route: 048
     Dates: start: 20100101, end: 20180404
  3. RAMIPRIL. [Suspect]
     Active Substance: RAMIPRIL
     Indication: CARDIAC FAILURE
     Dosage: 1 DF, DAILY
     Route: 048
     Dates: start: 20100101, end: 20180404
  4. QUARK [Suspect]
     Active Substance: RAMIPRIL
     Indication: BLOOD PRESSURE MANAGEMENT
     Dosage: 1 DF, UNK
     Route: 048
     Dates: start: 20100101
  5. LOBIVON [Suspect]
     Active Substance: NEBIVOLOL HYDROCHLORIDE
     Indication: CARDIAC FAILURE
     Dosage: 1 DF, UNK
     Route: 048
     Dates: start: 20100101, end: 20180404

REACTIONS (2)
  - Arrhythmia [Recovered/Resolved]
  - Drop attacks [Recovered/Resolved]

NARRATIVE: CASE EVENT DATE: 20180404
